FAERS Safety Report 8075882-5 (Version None)
Quarter: 2012Q1

REPORT INFORMATION
  Report Type: 
  Country: None (occurrence: None)
  Receive Date: 20120127
  Receipt Date: 20120123
  Transmission Date: 20120608
  Serious: Yes (Hospitalization)
  Sender: FDA-Public Use
  Company Number: DE-ABBOTT-12P-062-0895976-00

PATIENT
  Sex: Male
  Weight: 41.8 kg

DRUGS (4)
  1. HUMIRA [Suspect]
     Indication: JUVENILE ARTHRITIS
     Route: 058
     Dates: start: 20101119, end: 20110124
  2. PREDNISONE TAB [Suspect]
     Indication: JUVENILE ARTHRITIS
     Dates: start: 20100601
  3. HUMIRA [Suspect]
     Route: 058
     Dates: start: 20110701
  4. ENBREL [Suspect]
     Indication: JUVENILE ARTHRITIS
     Dates: start: 20081111, end: 20101119

REACTIONS (1)
  - ANXIETY [None]
